FAERS Safety Report 6709334-9 (Version None)
Quarter: 2010Q2

REPORT INFORMATION
  Report Type: 
  Country: None (occurrence: None)
  Receive Date: 20100503
  Receipt Date: 20100503
  Transmission Date: 20101027
  Serious: Yes (Other)
  Sender: FDA-Public Use
  Company Number: None

PATIENT
  Sex: Male
  Weight: 11.7935 kg

DRUGS (2)
  1. CHILDREN'S MOTRIN [Suspect]
     Indication: VIRAL INFECTION
     Dosage: 5 ML ONCE PO
     Route: 048
     Dates: start: 20100430, end: 20100430
  2. CHILDREN'S MOTRIN [Suspect]

REACTIONS (1)
  - HYPERSENSITIVITY [None]
